FAERS Safety Report 5731030-5 (Version None)
Quarter: 2008Q2

REPORT INFORMATION
  Report Type: 
  Country: None (occurrence: None)
  Receive Date: 20080505
  Receipt Date: 20080424
  Transmission Date: 20081010
  Serious: Yes (Hospitalization)
  Sender: FDA-Public Use
  Company Number: 163-21880-08040943

PATIENT
  Age: 55 Year
  Sex: Male
  Weight: 67 kg

DRUGS (12)
  1. REVLIMID [Suspect]
     Indication: AMYLOIDOSIS
     Dosage: 15 MG, X 21 DAYS, ORAL
     Route: 048
     Dates: start: 20080303, end: 20080417
  2. CYCLOPHOSPHAMIDE [Suspect]
     Indication: AMYLOIDOSIS
     Dosage: 550 MG, DAILY, DAYS 1, 8 + 15
     Dates: start: 20080303, end: 20080417
  3. DEXAMETHASONE TAB [Suspect]
     Indication: AMYLOIDOSIS
     Dosage: 40 MG, DAILY ON DAYS 1,8,15 + 22
     Dates: start: 20080303, end: 20080417
  4. BACTRIM DS [Concomitant]
  5. ACYCLOVIR [Concomitant]
  6. ZOFRAN [Concomitant]
  7. ALDACTONE [Concomitant]
  8. ASPIRIN [Concomitant]
  9. LANOXIN (DICOXIN) [Concomitant]
  10. DARVOCET [Concomitant]
  11. PRILOSEC [Concomitant]
  12. POTASSIUM CHLORIDE [Concomitant]

REACTIONS (4)
  - CARDIAC FAILURE CONGESTIVE [None]
  - HYPONATRAEMIA [None]
  - THROMBOCYTOPENIA [None]
  - WEIGHT INCREASED [None]
